FAERS Safety Report 19678057 (Version 1)
Quarter: 2021Q3

REPORT INFORMATION
  Report Type: Spontaneous
  Country: BR (occurrence: BR)
  Receive Date: 20210809
  Receipt Date: 20210809
  Transmission Date: 20211014
  Serious: Yes (Disabling, Other)
  Sender: FDA-Public Use
  Company Number: BR-NOVOPROD-813986

PATIENT
  Age: 43 Year
  Sex: Female
  Weight: 65 kg

DRUGS (5)
  1. FUROSEMIDE. [Concomitant]
     Active Substance: FUROSEMIDE
     Dosage: UNK
     Route: 065
  2. INSULATARD HM [Suspect]
     Active Substance: INSULIN HUMAN
     Indication: PRODUCT USED FOR UNKNOWN INDICATION
     Dosage: UNK (4 + 6 + 4?6)
     Route: 065
  3. NAPRIX [Concomitant]
     Active Substance: RAMIPRIL
     Dosage: 5 MG
     Route: 065
  4. DESVENLAFAXINE. [Concomitant]
     Active Substance: DESVENLAFAXINE
     Dosage: UNK
     Route: 065
  5. SIMVASTATIN. [Concomitant]
     Active Substance: SIMVASTATIN
     Dosage: UNK
     Route: 065

REACTIONS (4)
  - Multiple injuries [Unknown]
  - Paraplegia [Unknown]
  - Spinal cord injury [Unknown]
  - Hypoglycaemia [Recovered/Resolved]
